FAERS Safety Report 22144720 (Version 1)
Quarter: 2023Q1

REPORT INFORMATION
  Report Type: Report from Study
  Country: UA (occurrence: UA)
  Receive Date: 20230328
  Receipt Date: 20230328
  Transmission Date: 20230418
  Serious: Yes (Death, Hospitalization, Other)
  Sender: FDA-Public Use
  Company Number: UA-CELGENE-UKR-20171008434

PATIENT
  Age: 48 Year
  Sex: Male

DRUGS (1)
  1. OZANIMOD [Suspect]
     Active Substance: OZANIMOD
     Indication: Relapsing multiple sclerosis
     Dosage: DAILY DOSE : 1 CAPSULE?TOTAL DOSE : 360 CAPSULE?UNIT DOSE : 1 CAPSULE?1 CAPSULE DAILY
     Route: 048
     Dates: start: 20161021, end: 20171016

REACTIONS (2)
  - Pulmonary embolism [Fatal]
  - Lower limb fracture [Recovered/Resolved]

NARRATIVE: CASE EVENT DATE: 20171022
